FAERS Safety Report 9163784 (Version 1)
Quarter: 2013Q1

REPORT INFORMATION
  Report Type: Spontaneous
  Country: CH (occurrence: CH)
  Receive Date: 20130314
  Receipt Date: 20130314
  Transmission Date: 20140127
  Serious: Yes (Other)
  Sender: FDA-Public Use
  Company Number: CH-ASTRAZENECA-2013SE15293

PATIENT
  Age: 57 Year
  Sex: Male
  Weight: 60 kg

DRUGS (4)
  1. CRESTOR [Suspect]
     Indication: HYPERCHOLESTEROLAEMIA
     Route: 048
     Dates: start: 201212, end: 20130109
  2. RAPAMUNE [Interacting]
     Indication: PROPHYLAXIS AGAINST TRANSPLANT REJECTION
     Route: 048
     Dates: start: 2012
  3. RAPAMUNE [Interacting]
     Indication: IMMUNOSUPPRESSION
     Route: 048
     Dates: start: 2012
  4. FLUVASTATIN [Concomitant]
     Indication: HYPERLIPIDAEMIA
     Route: 048
     Dates: end: 201212

REACTIONS (2)
  - Drug interaction [Unknown]
  - Immunosuppressant drug level increased [Unknown]
